FAERS Safety Report 26084871 (Version 1)
Quarter: 2025Q4

REPORT INFORMATION
  Report Type: Report from Study
  Country: EU (occurrence: EU)
  Receive Date: 20251124
  Receipt Date: 20251124
  Transmission Date: 20260118
  Serious: Yes (Hospitalization)
  Sender: ASCEND THERAPEUTICS US, LLC
  Company Number: EU-Ascend Therapeutics US, LLC-2189262

PATIENT
  Age: 34 Year
  Sex: Male

DRUGS (6)
  1. ANDROGEL [Suspect]
     Active Substance: TESTOSTERONE
     Indication: Performance enhancing product use
  2. NANDROLONE [Suspect]
     Active Substance: NANDROLONE
  3. OXYBATE [Suspect]
     Active Substance: OXYBATE
  4. SILDENAFIL [Suspect]
     Active Substance: SILDENAFIL
  5. TRENBOLONE [Suspect]
     Active Substance: TRENBOLONE
  6. TESTOSTERONE [Suspect]
     Active Substance: TESTOSTERONE

REACTIONS (10)
  - Tachycardia [Unknown]
  - Anger [Unknown]
  - Mood swings [Unknown]
  - Drug abuse [Unknown]
  - Paranoia [Unknown]
  - Restlessness [Unknown]
  - Hyperhidrosis [Unknown]
  - Suicidal ideation [Unknown]
  - Feeling of despair [Unknown]
  - Psychiatric symptom [Unknown]
